FAERS Safety Report 6779168-8 (Version None)
Quarter: 2010Q2

REPORT INFORMATION
  Report Type: 
  Country: None (occurrence: None)
  Receive Date: 20100618
  Receipt Date: 20100610
  Transmission Date: 20101027
  Serious: Yes (Hospitalization)
  Sender: FDA-Public Use
  Company Number: JP-ROCHE-593378

PATIENT
  Sex: Female
  Weight: 23 kg

DRUGS (14)
  1. TOCILIZUMAB [Suspect]
     Indication: JUVENILE ARTHRITIS
     Route: 041
     Dates: start: 20080830, end: 20080830
  2. TOCILIZUMAB [Suspect]
     Route: 041
     Dates: start: 20081007, end: 20081007
  3. TOCILIZUMAB [Suspect]
     Route: 041
     Dates: start: 20081101, end: 20081101
  4. TOCILIZUMAB [Suspect]
     Route: 041
     Dates: start: 20081128, end: 20081128
  5. TOCILIZUMAB [Suspect]
     Route: 041
     Dates: start: 20081220, end: 20081220
  6. TOCILIZUMAB [Suspect]
     Route: 041
     Dates: start: 20090114, end: 20090114
  7. TOCILIZUMAB [Suspect]
     Route: 041
     Dates: start: 20090207, end: 20090207
  8. TOCILIZUMAB [Suspect]
     Route: 041
     Dates: start: 20090228, end: 20100513
  9. PREDNISOLONE [Concomitant]
     Dosage: UNKNOWNDRUG (PREDNISOLONE), FORM: PERORAL AGENT
     Route: 048
     Dates: end: 20080809
  10. PREDNISOLONE [Concomitant]
     Dosage: DOSE REDUCED
     Route: 048
     Dates: start: 20080810
  11. FROBEN [Concomitant]
     Route: 048
  12. MARZULENE S [Concomitant]
     Dosage: DRUG:MARZULENE-S(SODIUM AZULENE SULFONATE_L-GLUTAMINE), DOSE FORM: GRANULATED POWDER
     Route: 048
  13. ZADITEN [Concomitant]
     Route: 048
  14. MUCODYNE [Concomitant]
     Dosage: FORM: MINUTE GRAIN
     Route: 048
     Dates: start: 20080913

REACTIONS (3)
  - BLOOD AMYLASE INCREASED [None]
  - C-REACTIVE PROTEIN INCREASED [None]
  - MUMPS [None]
